FAERS Safety Report 7362577-6 (Version None)
Quarter: 2011Q1

REPORT INFORMATION
  Report Type: 
  Country: None (occurrence: None)
  Receive Date: 20110320
  Receipt Date: 20110210
  Transmission Date: 20110831
  Serious: Yes (Hospitalization, Other)
  Sender: FDA-Public Use
  Company Number: US-BAYER-200941000NA

PATIENT
  Sex: Female
  Weight: 84 kg

DRUGS (16)
  1. IBUPROFEN [Concomitant]
     Dosage: UNK
  2. METHYLPREDNISOLONE [Concomitant]
     Dosage: UNK
  3. AMOXICILLIN [Concomitant]
     Dosage: UNK
  4. CYCLOBENZAPRINE [Concomitant]
     Dosage: UNK
  5. PREMARIN [Concomitant]
     Dosage: UNK
  6. OXYCODONE HCL AND ACETAMINOPHEN [Concomitant]
     Dosage: UNK
  7. FLUOXETINE HCL [Concomitant]
     Dosage: UNK
  8. YASMIN [Suspect]
     Indication: MENSTRUAL CYCLE MANAGEMENT
     Dosage: 1 DF (DAILY DOSE), QD, ORAL
     Route: 048
     Dates: start: 20010101, end: 20070101
  9. CIPROFLOXACIN [Concomitant]
     Dosage: UNK
  10. YASMIN [Suspect]
     Indication: OVARIAN CYST
  11. NAPROXEN [Concomitant]
     Dosage: UNK
  12. HYDROXYZINE [Concomitant]
     Dosage: UNK
  13. RANITIDINE [Concomitant]
     Dosage: UNK
  14. LIPITOR [Concomitant]
     Dosage: 20 MG, UNK
     Route: 048
  15. EFFEXOR XR [Concomitant]
     Dosage: 37.5 MG, UNK
     Route: 048
  16. WELLBUTRIN [Concomitant]
     Dosage: 300 MG, UNK
     Route: 048

REACTIONS (4)
  - ABDOMINAL PAIN [None]
  - CHOLELITHIASIS [None]
  - CHOLECYSTECTOMY [None]
  - CHOLECYSTITIS [None]
